FAERS Safety Report 7374381-3 (Version None)
Quarter: 2011Q1

REPORT INFORMATION
  Report Type: 
  Country: None (occurrence: None)
  Receive Date: 20110325
  Receipt Date: 20110315
  Transmission Date: 20110831
  Serious: Yes (Other)
  Sender: FDA-Public Use
  Company Number: ZA-JNJFOC-20110300860

PATIENT
  Age: 39 Year
  Sex: Female

DRUGS (1)
  1. RISPERDAL CONSTA [Suspect]
     Indication: ILL-DEFINED DISORDER
     Dosage: TWO WEEKLY TREATMENT
     Route: 065

REACTIONS (6)
  - RENAL PAIN [None]
  - DIZZINESS [None]
  - CONVULSION [None]
  - HEADACHE [None]
  - TREMOR [None]
  - ABDOMINAL PAIN [None]
